FAERS Safety Report 8121763-8 (Version None)
Quarter: 2012Q1

REPORT INFORMATION
  Report Type: 
  Country: None (occurrence: None)
  Receive Date: 20120208
  Receipt Date: 20120202
  Transmission Date: 20120608
  Serious: Yes (Hospitalization)
  Sender: FDA-Public Use
  Company Number: GR-ABBOTT-11P-066-0880295-00

PATIENT
  Sex: Female

DRUGS (1)
  1. HUMIRA [Suspect]
     Indication: RHEUMATOID ARTHRITIS

REACTIONS (6)
  - RENAL MASS [None]
  - HAEMATOMA [None]
  - POLYNEUROPATHY [None]
  - INFECTION [None]
  - RENAL FAILURE ACUTE [None]
  - PYREXIA [None]
